FAERS Safety Report 17551294 (Version 2)
Quarter: 2020Q2

REPORT INFORMATION
  Report Type: Spontaneous
  Country: US (occurrence: US)
  Receive Date: 20200317
  Receipt Date: 20200415
  Transmission Date: 20200713
  Serious: No
  Sender: FDA-Public Use
  Company Number: US-SMITH AND NEPHEW, INC-2020SMT00024

PATIENT
  Sex: Female
  Weight: 110.66 kg

DRUGS (15)
  1. GABAPENTIN. [Concomitant]
     Active Substance: GABAPENTIN
  2. LASIX [Concomitant]
     Active Substance: FUROSEMIDE
  3. BACTRIM [Concomitant]
     Active Substance: SULFAMETHOXAZOLE\TRIMETHOPRIM
  4. PRAMIPEXOL [Concomitant]
     Active Substance: PRAMIPEXOLE
  5. MIRAPEX [Concomitant]
     Active Substance: PRAMIPEXOLE DIHYDROCHLORIDE
  6. HYDROXYZINE [Concomitant]
     Active Substance: HYDROXYZINE HYDROCHLORIDE
  7. METHOCARBAMOL. [Concomitant]
     Active Substance: METHOCARBAMOL
  8. COLLAGENASE SANTYL [Suspect]
     Active Substance: COLLAGENASE CLOSTRIDIUM HISTOLYTICUM
     Indication: WOUND
     Dosage: CLEAN THE LEG AND APPLY 1 APPLICATION 1X/DAY TO LEG
     Route: 061
     Dates: start: 2019, end: 2019
  9. KEFLEX [Concomitant]
     Active Substance: CEPHALEXIN
  10. BUSPIRONE [Concomitant]
     Active Substance: BUSPIRONE HYDROCHLORIDE
  11. POTASSIUM [Concomitant]
     Active Substance: POTASSIUM
  12. SPIRONOLACTONE. [Concomitant]
     Active Substance: SPIRONOLACTONE
     Indication: CELLULITIS
  13. COLLAGENASE SANTYL [Suspect]
     Active Substance: COLLAGENASE CLOSTRIDIUM HISTOLYTICUM
     Indication: WOUND INFECTION
     Dosage: CLEAN THE LEG AND APPLY 1 APPLICATION 1X/DAY TO LEG
     Route: 061
     Dates: start: 2020, end: 2020
  14. OXYCODONE [Concomitant]
     Active Substance: OXYCODONE
  15. METOPROLOL. [Concomitant]
     Active Substance: METOPROLOL

REACTIONS (1)
  - Application site pain [Recovered/Resolved]
